FAERS Safety Report 12460942 (Version 1)
Quarter: 2016Q2

REPORT INFORMATION
  Report Type: Spontaneous
  Country: HR (occurrence: HR)
  Receive Date: 20160613
  Receipt Date: 20160613
  Transmission Date: 20160815
  Serious: Yes (Other)
  Sender: FDA-Public Use
  Company Number: HR-TEVA-664752ISR

PATIENT
  Age: 62 Year
  Sex: Female
  Weight: 76 kg

DRUGS (4)
  1. PACLITAXEL PLIVA [Suspect]
     Active Substance: PACLITAXEL
     Indication: BREAST CANCER FEMALE
     Dosage: 320 UNKNOWN DAILY;
     Route: 042
     Dates: start: 20160525, end: 20160530
  2. SETRONON PLIVA [Concomitant]
     Dosage: 8 MILLIGRAM DAILY;
     Route: 042
     Dates: start: 20160525, end: 20160530
  3. DEKSAMETAZON PLIVA [Concomitant]
     Dosage: 20 MILLIGRAM DAILY;
     Route: 042
     Dates: start: 20160525, end: 20160530
  4. SYNOPEN [Concomitant]
     Dosage: 20 MILLIGRAM DAILY;
     Route: 042
     Dates: start: 20160525, end: 20160530

REACTIONS (1)
  - Idiosyncratic drug reaction [Recovered/Resolved]

NARRATIVE: CASE EVENT DATE: 20160525
